FAERS Safety Report 4451972-0 (Version None)
Quarter: 2004Q3

REPORT INFORMATION
  Report Type: 
  Country: None (occurrence: None)
  Receive Date: 20040916
  Receipt Date: 20040913
  Transmission Date: 20050211
  Serious: Yes (Hospitalization)
  Sender: FDA-Public Use
  Company Number: 04-09-1289

PATIENT
  Age: 24 Year
  Sex: Female

DRUGS (1)
  1. CEPHALEXIN [Suspect]
     Indication: PHARYNGITIS
     Dosage: 500 MG BID

REACTIONS (11)
  - COUGH [None]
  - DIARRHOEA [None]
  - DISEASE RECURRENCE [None]
  - GASTRITIS [None]
  - HAEMODIALYSIS [None]
  - HAEMOPTYSIS [None]
  - NAUSEA [None]
  - NEPHROPATHY TOXIC [None]
  - RENAL FAILURE ACUTE [None]
  - RENAL TUBULAR NECROSIS [None]
  - VOMITING [None]
